FAERS Safety Report 25666532 (Version 1)
Quarter: 2025Q3

REPORT INFORMATION
  Report Type: Spontaneous
  Country: VE (occurrence: VE)
  Receive Date: 20250811
  Receipt Date: 20250811
  Transmission Date: 20251020
  Serious: Yes (Other)
  Sender: NOVARTIS
  Company Number: VE-002147023-NVSC2024VE205238

PATIENT
  Sex: Female

DRUGS (1)
  1. GLIVEC [Suspect]
     Active Substance: IMATINIB MESYLATE
     Indication: Chronic myeloid leukaemia
     Route: 065

REACTIONS (6)
  - Epistaxis [Unknown]
  - Haematochezia [Unknown]
  - White blood cell disorder [Unknown]
  - Splenitis [Unknown]
  - Therapy non-responder [Unknown]
  - Laboratory test abnormal [Unknown]
